FAERS Safety Report 14618218 (Version 1)
Quarter: 2018Q1

REPORT INFORMATION
  Report Type: Report from Study
  Country: CN (occurrence: CN)
  Receive Date: 20180309
  Receipt Date: 20180309
  Transmission Date: 20180509
  Serious: Yes (Hospitalization)
  Sender: FDA-Public Use
  Company Number: CN-JNJFOC-20180309397

PATIENT
  Age: 70 Year
  Sex: Female

DRUGS (7)
  1. THIAMAZOLE [Concomitant]
     Active Substance: METHIMAZOLE
     Indication: HYPOTHYROIDISM
     Route: 048
     Dates: start: 20170628
  2. XARELTO [Suspect]
     Active Substance: RIVAROXABAN
     Indication: CEREBROVASCULAR ACCIDENT
     Route: 048
     Dates: start: 20180302
  3. XARELTO [Suspect]
     Active Substance: RIVAROXABAN
     Indication: CEREBROVASCULAR ACCIDENT PROPHYLAXIS
     Route: 048
     Dates: start: 20180302
  4. METOPROLOL TARTRATE. [Concomitant]
     Active Substance: METOPROLOL TARTRATE
     Indication: ATRIAL FIBRILLATION
     Route: 048
     Dates: start: 20170317
  5. XARELTO [Suspect]
     Active Substance: RIVAROXABAN
     Indication: CEREBROVASCULAR ACCIDENT
     Route: 048
     Dates: start: 20171208
  6. XARELTO [Suspect]
     Active Substance: RIVAROXABAN
     Indication: CEREBROVASCULAR ACCIDENT PROPHYLAXIS
     Route: 048
     Dates: start: 20171208
  7. WARFARIN SODIUM. [Concomitant]
     Active Substance: WARFARIN SODIUM
     Indication: ATRIAL FIBRILLATION
     Dosage: FIRST DAY 2.5MG, SECOND DAY 3.125MG, TAKE DOSES AT EVENLY SP
     Route: 048
     Dates: start: 20170226, end: 20171206

REACTIONS (1)
  - Lacunar infarction [Recovered/Resolved]

NARRATIVE: CASE EVENT DATE: 20180224
